FAERS Safety Report 4487865-2 (Version None)
Quarter: 2004Q4

REPORT INFORMATION
  Report Type: 
  Country: None (occurrence: None)
  Receive Date: 20041027
  Receipt Date: 20041027
  Transmission Date: 20050328
  Serious: Yes (Hospitalization)
  Sender: FDA-Public Use
  Company Number: None

PATIENT
  Age: 65 Year
  Sex: Male
  Weight: 87.2 kg

DRUGS (16)
  1. TAXOTERE [Suspect]
     Indication: BLADDER CANCER
     Dosage: 36 MG /M2 , D1, I, 15, IV
     Route: 042
     Dates: start: 20040802, end: 20040913
  2. CAPECITABINE [Suspect]
     Indication: BLADDER CANCER
     Dosage: 1000 MG/M2 , D5-18, PO
     Route: 048
     Dates: start: 20040807
  3. SYNTHROID [Concomitant]
  4. ZOLOFT [Concomitant]
  5. MEGACE [Concomitant]
  6. VICODIN [Concomitant]
  7. FLAGYL [Concomitant]
  8. PREVACID [Concomitant]
  9. LASIX [Concomitant]
  10. POTASSIUM CHLORIDE [Concomitant]
  11. DECADRON [Concomitant]
  12. BENADRYL [Concomitant]
  13. COMPAZINE [Concomitant]
  14. DEXAMETHASONE [Concomitant]
  15. ARANSEP [Concomitant]
  16. SENNA STOOL SOFTENER [Concomitant]

REACTIONS (35)
  - BACTERIA URINE [None]
  - BLOOD ALBUMIN DECREASED [None]
  - BLOOD ALKALINE PHOSPHATASE INCREASED [None]
  - BREATH SOUNDS DECREASED [None]
  - BRONCHITIS CHRONIC [None]
  - CREPITATIONS [None]
  - CRYPTOGENIC ORGANIZING PNEUMONIA [None]
  - DECREASED APPETITE [None]
  - DIARRHOEA [None]
  - DIZZINESS [None]
  - DYSPNOEA [None]
  - ELECTROCARDIOGRAM ABNORMAL [None]
  - EMBOLISM [None]
  - FATIGUE [None]
  - HAEMOGLOBIN DECREASED [None]
  - HEADACHE [None]
  - HYPOXIA [None]
  - IMMUNOSUPPRESSION [None]
  - INFECTION [None]
  - INTERNATIONAL NORMALISED RATIO INCREASED [None]
  - LEUKAEMOID REACTION [None]
  - LEUKOCYTOSIS [None]
  - METASTASES TO LUNG [None]
  - OEDEMA PERIPHERAL [None]
  - ORTHOSTATIC HYPOTENSION [None]
  - PALLOR [None]
  - PARAESTHESIA [None]
  - PLATELET COUNT INCREASED [None]
  - PLEURAL EFFUSION [None]
  - PLEURITIC PAIN [None]
  - PNEUMONIA [None]
  - PNEUMONITIS [None]
  - PULMONARY OEDEMA [None]
  - URINE KETONE BODY PRESENT [None]
  - WEIGHT INCREASED [None]
